FAERS Safety Report 9865592 (Version 1)
Quarter: 2014Q1

REPORT INFORMATION
  Report Type: Spontaneous
  Country: US (occurrence: US)
  Receive Date: 20140203
  Receipt Date: 20140203
  Transmission Date: 20141002
  Serious: No
  Sender: FDA-Public Use
  Company Number: US-ALLERGAN-1305030US

PATIENT
  Sex: Female

DRUGS (11)
  1. RESTASIS [Suspect]
     Indication: DRY EYE
     Dosage: 1 GTT, EACH EYE BID
     Route: 047
     Dates: start: 201302, end: 20130324
  2. OXYBUTYNIN CHLORIDE [Concomitant]
     Indication: HYPERTONIC BLADDER
     Dosage: 5 MG, QD
     Route: 048
     Dates: start: 201209, end: 201301
  3. OXYBUTYNIN CHLORIDE [Concomitant]
     Dosage: 5 MG, BID
     Route: 048
     Dates: start: 201301, end: 20130326
  4. ATENOLOL [Concomitant]
     Dosage: UNK
  5. ATORVASTATIN [Concomitant]
     Dosage: UNK
  6. DILTIAZEM [Concomitant]
     Dosage: UNK
  7. LOMOTIL [Concomitant]
     Dosage: UNK
  8. PANTOPRAZOLE [Concomitant]
     Dosage: UNK
  9. MECLIZINE [Concomitant]
     Dosage: UNK
  10. ASPIRIN [Concomitant]
     Dosage: UNK
  11. VITAMINS NOS [Concomitant]
     Dosage: UNK

REACTIONS (2)
  - Erythema [Recovering/Resolving]
  - Skin irritation [Recovering/Resolving]
